FAERS Safety Report 4408177-9 (Version None)
Quarter: 2004Q3

REPORT INFORMATION
  Report Type: 
  Country: None (occurrence: None)
  Receive Date: 20040722
  Receipt Date: 20030712
  Transmission Date: 20050211
  Serious: Yes (Death)
  Sender: FDA-Public Use
  Company Number: JP-JNJFOC-20040702648

PATIENT
  Age: 28 Year
  Sex: Female

DRUGS (4)
  1. LEVOFLOXACIN [Suspect]
     Indication: PNEUMONIA
     Dosage: ORAL
     Route: 048
     Dates: start: 20040628, end: 20040630
  2. AUGMENTIN [Concomitant]
  3. PEGASYA (PEGINTERFERON ALFA-2B) [Concomitant]
  4. SUBUTEX [Concomitant]

REACTIONS (1)
  - BONE MARROW DEPRESSION [None]
